FAERS Safety Report 20990617 (Version 2)
Quarter: 2022Q2

REPORT INFORMATION
  Report Type: Other
  Country: US (occurrence: None)
  Receive Date: 20220622
  Receipt Date: 20220622
  Transmission Date: 20220721
  Serious: No
  Sender: FDA-Public Use
  Company Number: US-ROCHE-3120705

PATIENT
  Age: 59 Year
  Sex: Female
  Weight: 99.880 kg

DRUGS (3)
  1. OCREVUS [Suspect]
     Active Substance: OCRELIZUMAB
     Indication: Multiple sclerosis
     Dosage: LAST TREATMENT DATE: 21/MAY/2021, MOST RECENT INFUSION: 29/NOV/2021
     Route: 042
     Dates: start: 20180926
  2. PROVIGIL [Concomitant]
     Active Substance: MODAFINIL
  3. AMITRIPTYLINE [Concomitant]
     Active Substance: AMITRIPTYLINE

REACTIONS (1)
  - COVID-19 [Recovered/Resolved]

NARRATIVE: CASE EVENT DATE: 20220604
